FAERS Safety Report 20706160 (Version 1)
Quarter: 2022Q2

REPORT INFORMATION
  Report Type: Spontaneous
  Country: US (occurrence: US)
  Receive Date: 20220413
  Receipt Date: 20220413
  Transmission Date: 20220721
  Serious: No
  Sender: FDA-Public Use
  Company Number: US-PFIZER INC-2021881727

PATIENT
  Age: 74 Year
  Sex: Female
  Weight: 74.84 kg

DRUGS (8)
  1. IBRANCE [Suspect]
     Active Substance: PALBOCICLIB
     Dosage: 125 MG, 1X/DAY FOR 3 WEEKS AND THEN 7 DAYS OFF
     Dates: start: 202105
  2. CITALOPRAM HYDROBROMIDE [Concomitant]
     Active Substance: CITALOPRAM HYDROBROMIDE
     Dosage: UNK, DAILY (1-40MG TABLET DAILY)
  3. ATORVASTATIN CALCIUM [Concomitant]
     Active Substance: ATORVASTATIN CALCIUM
     Indication: Blood cholesterol
     Dosage: 20 MG, 1X/DAY
     Dates: start: 2018
  4. ALLOPURINOL [Concomitant]
     Active Substance: ALLOPURINOL
     Dosage: 300 MG, 1X/DAY
  5. ZOLPIDEM [Concomitant]
     Active Substance: ZOLPIDEM TARTRATE
     Dosage: 5 MG (5MG TABLET NOT TAKEN EVERY DAY, FREQUENCY OTHERWISE UNKNOWN   )
  6. VITAMIN D3 [Concomitant]
     Active Substance: CHOLECALCIFEROL
     Indication: Vitamin supplementation
     Dosage: 5000 IU (125MCG OR 5000IUS   )
  7. CALCIUM WITH VITAMIN D3 [CALCIUM CARBONATE;COLECALCIFEROL] [Concomitant]
     Indication: Vitamin supplementation
     Dosage: 1000 MG
  8. ZYRTEC [Concomitant]
     Active Substance: CETIRIZINE HYDROCHLORIDE
     Dosage: UNK, DAILY (2-25MG TABLETS DAILY   )

REACTIONS (5)
  - Vomiting [Recovered/Resolved]
  - Constipation [Recovered/Resolved]
  - Myalgia [Unknown]
  - Neoplasm progression [Recovered/Resolved with Sequelae]
  - Retching [Recovered/Resolved with Sequelae]

NARRATIVE: CASE EVENT DATE: 20210707
